FAERS Safety Report 10265620 (Version 1)
Quarter: 2014Q2

REPORT INFORMATION
  Report Type: Report from Study
  Country: MX (occurrence: MX)
  Receive Date: 20140627
  Receipt Date: 20140627
  Transmission Date: 20141212
  Serious: Yes (Death, Other)
  Sender: FDA-Public Use
  Company Number: PHHY2014MX079544

PATIENT
  Age: 92 Year
  Sex: Female

DRUGS (5)
  1. DIOVAN [Suspect]
     Indication: CARDIAC DISORDER
     Dosage: 80 MG DAILY
     Route: 048
     Dates: start: 20121101, end: 20131213
  2. DIOVAN [Suspect]
     Dosage: 40 MG DAILY
     Route: 048
     Dates: start: 20131213
  3. SUPRADOL//KETOROLAC TROMETHAMINE [Concomitant]
     Indication: PAIN
     Dosage: 1 DF DAILY
  4. DOLAC [Concomitant]
     Indication: PAIN
     Dosage: 2 DF DAILY
  5. PANTOPRAZOLE [Concomitant]
     Indication: GASTRITIS
     Dosage: 2 DF DAILY

REACTIONS (11)
  - Bone neoplasm [Fatal]
  - Cholecystitis [Not Recovered/Not Resolved]
  - Cholelithiasis [Not Recovered/Not Resolved]
  - Gastrointestinal haemorrhage [Not Recovered/Not Resolved]
  - Anaemia [Not Recovered/Not Resolved]
  - Pain [Not Recovered/Not Resolved]
  - Cardiovascular disorder [Not Recovered/Not Resolved]
  - Coagulopathy [Not Recovered/Not Resolved]
  - Arterial injury [Not Recovered/Not Resolved]
  - Renal disorder [Not Recovered/Not Resolved]
  - Wrong technique in drug usage process [Not Recovered/Not Resolved]
